FAERS Safety Report 6765710-X (Version None)
Quarter: 2010Q2

REPORT INFORMATION
  Report Type: 
  Country: None (occurrence: None)
  Receive Date: 20100611
  Receipt Date: 20100602
  Transmission Date: 20101027
  Serious: Yes (Other)
  Sender: FDA-Public Use
  Company Number: US-NAPPMUNDI-USA-2010-0044353

PATIENT
  Age: 72 Year
  Sex: Female

DRUGS (2)
  1. OXYCONTIN [Suspect]
     Indication: PAIN
     Dosage: UNK
     Dates: start: 20080101
  2. OXYCODONE HCL [Suspect]
     Indication: PAIN
     Dosage: UNK
     Dates: start: 20080101

REACTIONS (2)
  - ARTHRALGIA [None]
  - TRANSIENT ISCHAEMIC ATTACK [None]
